FAERS Safety Report 15894480 (Version 3)
Quarter: 2019Q1

REPORT INFORMATION
  Report Type: Spontaneous
  Country: FR (occurrence: FR)
  Receive Date: 20190131
  Receipt Date: 20190221
  Transmission Date: 20190417
  Serious: Yes (Other)
  Sender: FDA-Public Use
  Company Number: FR-TEVA-2019-FR-1004516

PATIENT
  Age: 58 Year
  Sex: Male

DRUGS (2)
  1. VALSARTAN TEVA 80 MG [Suspect]
     Active Substance: VALSARTAN
     Indication: HYPERTENSION
     Route: 065
  2. BISOCE [Concomitant]
     Active Substance: BISOPROLOL

REACTIONS (8)
  - Headache [Unknown]
  - Facial paralysis [Recovering/Resolving]
  - Dyskinesia [Not Recovered/Not Resolved]
  - Fatigue [Unknown]
  - Ophthalmoplegia [Not Recovered/Not Resolved]
  - Dizziness [Unknown]
  - Nausea [Unknown]
  - Product supply issue [Unknown]

NARRATIVE: CASE EVENT DATE: 201812
